FAERS Safety Report 12086986 (Version 1)
Quarter: 2016Q1

REPORT INFORMATION
  Report Type: Spontaneous
  Country: US (occurrence: US)
  Receive Date: 20160217
  Receipt Date: 20160217
  Transmission Date: 20160526
  Serious: No
  Sender: FDA-Public Use
  Company Number: US-ALLERGAN-1507583US

PATIENT
  Age: 63 Year
  Sex: Female

DRUGS (2)
  1. BAUSCH + LOMB MOISTURE EYES [Concomitant]
     Indication: DRY EYE
     Route: 047
  2. RESTASIS [Suspect]
     Active Substance: CYCLOSPORINE
     Indication: DRY EYE
     Dosage: 2 GTT, Q12H
     Route: 047
     Dates: start: 201503

REACTIONS (5)
  - Surgery [Recovered/Resolved]
  - Dry mouth [Not Recovered/Not Resolved]
  - Ocular hyperaemia [Not Recovered/Not Resolved]
  - Eye irritation [Not Recovered/Not Resolved]
  - Asthenopia [Not Recovered/Not Resolved]
